FAERS Safety Report 7087596-9 (Version None)
Quarter: 2010Q4

REPORT INFORMATION
  Report Type: 
  Country: None (occurrence: None)
  Receive Date: 20101108
  Receipt Date: 20101028
  Transmission Date: 20110411
  Serious: No
  Sender: FDA-Public Use
  Company Number: US-BIOGENIDEC-2010BI038293

PATIENT
  Age: 51 Year
  Sex: Female

DRUGS (3)
  1. TYSABRI [Suspect]
     Indication: MULTIPLE SCLEROSIS
     Route: 042
     Dates: start: 20050210, end: 20050210
  2. TYSABRI [Suspect]
     Route: 042
     Dates: start: 20060912, end: 20100301
  3. TYSABRI [Suspect]
     Route: 042
     Dates: start: 20100719

REACTIONS (1)
  - MULTIPLE SCLEROSIS [None]
